FAERS Safety Report 4744787-7 (Version None)
Quarter: 2005Q3

REPORT INFORMATION
  Report Type: 
  Country: None (occurrence: None)
  Receive Date: 20050812
  Receipt Date: 20050812
  Transmission Date: 20060218
  Serious: Yes (Other)
  Sender: FDA-Public Use
  Company Number: None

PATIENT
  Age: 28 Year
  Sex: Female
  Weight: 47.6277 kg

DRUGS (7)
  1. REMICADE [Suspect]
     Indication: CROHN'S DISEASE
     Dosage: INTRAVENOUS
     Route: 042
     Dates: start: 20050609, end: 20050809
  2. PENTASA [Concomitant]
  3. XANAX [Concomitant]
  4. ZOLOFT [Concomitant]
  5. PROZAC [Concomitant]
  6. KLONOPIN [Concomitant]
  7. NORDETTE-21 [Concomitant]

REACTIONS (4)
  - ANXIETY [None]
  - DYSPNOEA [None]
  - PALPITATIONS [None]
  - PANIC ATTACK [None]
